FAERS Safety Report 11127223 (Version 1)
Quarter: 2015Q2

REPORT INFORMATION
  Report Type: Spontaneous
  Country: US (occurrence: None)
  Receive Date: 20150519
  Receipt Date: 20150519
  Transmission Date: 20150821
  Serious: Yes (Hospitalization)
  Sender: FDA-Public Use
  Company Number: OTH-PAT-2015006

PATIENT
  Age: 67 Year
  Sex: Male

DRUGS (1)
  1. CARBAGLU [Suspect]
     Active Substance: CARGLUMIC ACID
     Indication: HYPERAMMONAEMIA
     Route: 048
     Dates: end: 20150405

REACTIONS (4)
  - Upper limb fracture [None]
  - Contusion [None]
  - Balance disorder [None]
  - Fall [None]

NARRATIVE: CASE EVENT DATE: 20150505
